FAERS Safety Report 4394015-X (Version None)
Quarter: 2004Q3

REPORT INFORMATION
  Report Type: 
  Country: None (occurrence: None)
  Receive Date: 20040707
  Receipt Date: 20040618
  Transmission Date: 20050211
  Serious: Yes (Death, Other)
  Sender: FDA-Public Use
  Company Number: 8309

PATIENT
  Age: 76 Year
  Sex: Female
  Weight: 86 kg

DRUGS (6)
  1. AMIKACIN [Suspect]
     Dosage: 525 MG DAILY IV
     Route: 042
  2. AMIKACIN [Suspect]
     Dosage: 20 MG DAILY IT
     Route: 037
  3. MEROPENEM [Suspect]
     Dosage: 800 MG TID IV
     Route: 042
  4. CIPROFLOXACIN [Suspect]
     Dosage: 400 MG BID IV
     Route: 042
  5. CEFEPIME [Suspect]
     Dosage: 1 G BID IV
     Route: 042
  6. VANCOMYCIN [Suspect]
     Dosage: 1 G BID IV
     Route: 042

REACTIONS (5)
  - CANDIDIASIS [None]
  - CARDIAC DISORDER [None]
  - CSF BACTERIA IDENTIFIED [None]
  - INFECTION [None]
  - PSEUDOMONAS INFECTION [None]
